FAERS Safety Report 23586039 (Version 1)
Quarter: 2024Q1

REPORT INFORMATION
  Report Type: Report from Study
  Country: FR (occurrence: FR)
  Receive Date: 20240301
  Receipt Date: 20240301
  Transmission Date: 20240409
  Serious: Yes (Other)
  Sender: FDA-Public Use
  Company Number: FR-ABBVIE-5659188

PATIENT
  Age: 70 Year
  Sex: Female
  Weight: 60 kg

DRUGS (12)
  1. UPADACITINIB [Suspect]
     Active Substance: UPADACITINIB
     Indication: Rheumatoid arthritis
     Dosage: 15 MILLIGRAM
     Route: 048
     Dates: start: 20211103
  2. ACETAMINOPHEN\TRAMADOL [Concomitant]
     Active Substance: ACETAMINOPHEN\TRAMADOL
     Indication: Rheumatoid arthritis
     Dosage: 37.5/325 MG EVERY EIGHT HOURS
     Route: 048
     Dates: start: 202110
  3. ESOMEPRAZOLE [Concomitant]
     Active Substance: ESOMEPRAZOLE
     Indication: Prophylaxis
     Dosage: 20 MILLIGRAM
     Route: 048
     Dates: start: 2010
  4. PREDNISONE [Concomitant]
     Active Substance: PREDNISONE
     Indication: Rheumatoid arthritis
     Dosage: 20 MILLIGRAM
     Route: 048
     Dates: start: 202110, end: 2022
  5. PREDNISONE [Concomitant]
     Active Substance: PREDNISONE
     Indication: Rheumatoid arthritis
     Dosage: 5 MILLIGRAM
     Route: 048
     Dates: start: 20220201, end: 20221215
  6. HYDROCORTISONE [Concomitant]
     Active Substance: HYDROCORTISONE
     Indication: Rheumatoid arthritis
     Dosage: 10 MILLIGRAM
     Route: 048
     Dates: start: 20220201, end: 20221215
  7. covid-19 vaccine [Concomitant]
     Indication: COVID-19 immunisation
     Dosage: ONCE
     Dates: start: 2022, end: 2022
  8. covid-19 vaccine [Concomitant]
     Indication: COVID-19 immunisation
     Dosage: ONCE
     Dates: start: 20230110, end: 20230110
  9. covid-19 vaccine [Concomitant]
     Indication: COVID-19 immunisation
     Dosage: ONCE
     Dates: start: 202110, end: 202110
  10. covid-19 vaccine [Concomitant]
     Indication: COVID-19 immunisation
     Dosage: ONCE
     Dates: start: 202207, end: 202207
  11. CALCIUM CARBONATE\CHOLECALCIFEROL [Concomitant]
     Active Substance: CALCIUM CARBONATE\CHOLECALCIFEROL
     Indication: Prophylaxis
     Dosage: 1 SACHET DAILY
     Route: 048
     Dates: start: 20161215, end: 20220808
  12. CHOLECALCIFEROL [Concomitant]
     Active Substance: CHOLECALCIFEROL
     Indication: Prophylaxis
     Dosage: 100000 IU EVERY THREE MONTHS
     Route: 048
     Dates: start: 20220808

REACTIONS (2)
  - Loss of consciousness [Recovered/Resolved]
  - Syncope [Recovered/Resolved]

NARRATIVE: CASE EVENT DATE: 20240116
